FAERS Safety Report 7990355-3 (Version None)
Quarter: 2011Q4

REPORT INFORMATION
  Report Type: 
  Country: None (occurrence: None)
  Receive Date: 20111219
  Receipt Date: 20101129
  Transmission Date: 20120403
  Serious: No
  Sender: FDA-Public Use
  Company Number: US-ASTRAZENECA-2010SE56667

PATIENT
  Age: 66 Year
  Sex: Male

DRUGS (5)
  1. NEXIUM [Concomitant]
  2. CRESTOR [Suspect]
     Indication: HYPERCHOLESTEROLAEMIA
     Route: 048
     Dates: start: 20100801, end: 20101128
  3. HYZAR [Concomitant]
  4. FISH OIL [Concomitant]
  5. ASPIRIN [Concomitant]

REACTIONS (4)
  - HYPOAESTHESIA [None]
  - PAIN IN EXTREMITY [None]
  - BURNING SENSATION [None]
  - PARAESTHESIA [None]
